FAERS Safety Report 12978696 (Version 2)
Quarter: 2017Q1

REPORT INFORMATION
  Report Type: Spontaneous
  Country: US (occurrence: US)
  Receive Date: 20161128
  Receipt Date: 20170119
  Transmission Date: 20170428
  Serious: No
  Sender: FDA-Public Use
  Company Number: US-PFIZER INC-2016549962

PATIENT
  Age: 76 Year
  Weight: 57 kg

DRUGS (3)
  1. ADVIL SINUS CONGESTION AND PAIN [Suspect]
     Active Substance: IBUPROFEN\PHENYLEPHRINE HYDROCHLORIDE
     Indication: PAIN
  2. CORTISONE ACETATE. [Suspect]
     Active Substance: CORTISONE ACETATE
     Dosage: UNK
  3. ADVIL SINUS CONGESTION AND PAIN [Suspect]
     Active Substance: IBUPROFEN\PHENYLEPHRINE HYDROCHLORIDE
     Indication: SINUS DISORDER
     Dosage: UNK (ONE TABLET ON 21NOV2016 AND 2 TABLETS ON 22NOV2016)
     Dates: start: 20161121, end: 20161122

REACTIONS (3)
  - Erythema [Recovering/Resolving]
  - Condition aggravated [Unknown]
  - Sinus disorder [Unknown]

NARRATIVE: CASE EVENT DATE: 201611
